FAERS Safety Report 6276747-1 (Version None)
Quarter: 2009Q3

REPORT INFORMATION
  Report Type: 
  Country: None (occurrence: None)
  Receive Date: 20090722
  Receipt Date: 20080903
  Transmission Date: 20100115
  Serious: Yes (Hospitalization)
  Sender: FDA-Public Use
  Company Number: US-BRISTOL-MYERS SQUIBB COMPANY-14295489

PATIENT
  Age: 61 Year
  Sex: Male
  Weight: 76 kg

DRUGS (9)
  1. COUMADIN [Suspect]
     Indication: MYOCARDIAL INFARCTION
     Route: 048
     Dates: start: 20080101, end: 20080101
  2. COUMADIN [Suspect]
     Indication: STENT PLACEMENT
     Route: 048
     Dates: start: 20080101, end: 20080101
  3. PLAVIX [Suspect]
     Indication: MYOCARDIAL INFARCTION
     Route: 048
     Dates: start: 20080101
  4. PLAVIX [Suspect]
     Indication: STENT PLACEMENT
     Route: 048
     Dates: start: 20080101
  5. ASPIRIN [Suspect]
     Indication: MYOCARDIAL INFARCTION
     Dates: start: 20080101
  6. ASPIRIN [Suspect]
     Indication: STENT PLACEMENT
     Dates: start: 20080101
  7. PRILOSEC [Concomitant]
     Indication: HYPERTENSION
     Dosage: FORMULATION:CAPSULE
     Route: 048
  8. OMEPRAZOLE [Concomitant]
     Dosage: IN A CAPSULE FORM
     Route: 048
  9. ANTIHYPERTENSIVE [Concomitant]
     Indication: HYPERTENSION

REACTIONS (11)
  - ASTHENIA [None]
  - CHEST PAIN [None]
  - DYSPNOEA [None]
  - FATIGUE [None]
  - GASTROINTESTINAL HAEMORRHAGE [None]
  - LETHARGY [None]
  - MEMORY IMPAIRMENT [None]
  - MUSCLE SPASMS [None]
  - OXYGEN SATURATION DECREASED [None]
  - SENSATION OF HEAVINESS [None]
  - ULCER [None]
